FAERS Safety Report 16070153 (Version 1)
Quarter: 2019Q1

REPORT INFORMATION
  Report Type: Spontaneous
  Country: GB (occurrence: GB)
  Receive Date: 20190314
  Receipt Date: 20190314
  Transmission Date: 20190418
  Serious: Yes (Hospitalization)
  Sender: FDA-Public Use
  Company Number: GB-ACCORD-112506

PATIENT
  Age: 98 Year
  Sex: Female

DRUGS (14)
  1. ADCAL-D3 [Concomitant]
     Active Substance: CALCIUM CARBONATE\CHOLECALCIFEROL
  2. BISOPROLOL [Concomitant]
     Active Substance: BISOPROLOL
  3. ACETYLSALICYLIC ACID [Suspect]
     Active Substance: ASPIRIN
     Indication: PRODUCT USED FOR UNKNOWN INDICATION
     Route: 048
     Dates: end: 20180920
  4. CARBOMERS [Concomitant]
     Dosage: 980
  5. CLOTRIMAZOLE. [Concomitant]
     Active Substance: CLOTRIMAZOLE
     Dates: start: 20180914
  6. NITRAZEPAM [Suspect]
     Active Substance: NITRAZEPAM
     Indication: PRODUCT USED FOR UNKNOWN INDICATION
     Dosage: AT NIGHT
     Route: 048
     Dates: end: 20180920
  7. CITALOPRAM [Suspect]
     Active Substance: CITALOPRAM HYDROBROMIDE
     Indication: PRODUCT USED FOR UNKNOWN INDICATION
     Route: 048
     Dates: end: 20180920
  8. METFORMIN [Concomitant]
     Active Substance: METFORMIN HYDROCHLORIDE
  9. OMEPRAZOLE. [Suspect]
     Active Substance: OMEPRAZOLE
     Indication: PRODUCT USED FOR UNKNOWN INDICATION
     Route: 048
     Dates: end: 20180920
  10. PARACETAMOL [Concomitant]
     Active Substance: ACETAMINOPHEN
  11. IRON [Concomitant]
     Active Substance: IRON
     Dosage: IN MORNING
     Route: 048
     Dates: end: 20180926
  12. ANASTROZOLE. [Concomitant]
     Active Substance: ANASTROZOLE
  13. RAMIPRIL. [Suspect]
     Active Substance: RAMIPRIL
     Indication: PRODUCT USED FOR UNKNOWN INDICATION
     Route: 048
     Dates: end: 20180920
  14. ADALAT [Concomitant]
     Active Substance: NIFEDIPINE

REACTIONS (5)
  - Confusional state [Unknown]
  - Hyponatraemia [Recovering/Resolving]
  - Fall [Recovered/Resolved with Sequelae]
  - Subarachnoid haemorrhage [Recovering/Resolving]
  - Contusion [Unknown]

NARRATIVE: CASE EVENT DATE: 20180920
